FAERS Safety Report 24903879 (Version 1)
Quarter: 2025Q1

REPORT INFORMATION
  Report Type: Spontaneous
  Country: US (occurrence: None)
  Receive Date: 20250129
  Receipt Date: 20250129
  Transmission Date: 20250409
  Serious: Yes (Life-Threatening)
  Sender: FDA-CTU
  Company Number: None

PATIENT
  Age: 47 Year
  Sex: Male
  Weight: 92.1 kg

DRUGS (7)
  1. CEFTRIAXONE SODIUM [Suspect]
     Active Substance: CEFTRIAXONE SODIUM
     Indication: Surgery
     Route: 040
  2. CEFTRIAXONE SODIUM [Suspect]
     Active Substance: CEFTRIAXONE SODIUM
     Indication: Prophylaxis
  3. VANCOMYCIN [Suspect]
     Active Substance: VANCOMYCIN
  4. MIDAZOLAM [Suspect]
     Active Substance: MIDAZOLAM
  5. PROPOFOL [Suspect]
     Active Substance: PROPOFOL
  6. FENTANYL [Suspect]
     Active Substance: FENTANYL
  7. ROCURONIUM [Suspect]
     Active Substance: ROCURONIUM BROMIDE

REACTIONS (6)
  - Hypotension [None]
  - Anaphylactic reaction [None]
  - Erythema [None]
  - Livedo reticularis [None]
  - Capillary nail refill test abnormal [None]
  - Anal incontinence [None]

NARRATIVE: CASE EVENT DATE: 20241003
